FAERS Safety Report 11882787 (Version 1)
Quarter: 2015Q4

REPORT INFORMATION
  Report Type: Spontaneous
  Country: FR (occurrence: FR)
  Receive Date: 20151231
  Receipt Date: 20151231
  Transmission Date: 20160305
  Serious: Yes (Other)
  Sender: FDA-Public Use
  Company Number: FR-B.I. PHARMACEUTICALS,INC./RIDGEFIELD-2015-BI-72582FF

PATIENT
  Age: 85 Year
  Sex: Female

DRUGS (3)
  1. TECHNESCAN [Suspect]
     Active Substance: TECHNETIUM TC-99M OXIDRONATE
     Indication: RADIOISOTOPE SCAN
     Dosage: FORMULATION: INJECTION, DOSAGE:169.7 MBQ THZEN 518.3 MBQ SOME HOURS LATER
     Route: 042
     Dates: start: 20151204, end: 20151204
  2. PERSANTINE [Suspect]
     Active Substance: DIPYRIDAMOLE
     Indication: CARDIAC STRESS TEST
     Dosage: DOSAGE: 37.5MG I.E. 7.5 ML
     Route: 042
     Dates: start: 20151204, end: 20151204
  3. AMINOPHYLLINE RENAUDIN [Suspect]
     Active Substance: AMINOPHYLLINE
     Indication: PROPHYLAXIS
     Dosage: FORMULATION: INJECTION, DOSAGE: 50MG I.E. 2ML,
     Route: 042
     Dates: start: 20151204, end: 20151204

REACTIONS (1)
  - Erythema [Recovered/Resolved]

NARRATIVE: CASE EVENT DATE: 20151204
